FAERS Safety Report 9217901 (Version 1)
Quarter: 2013Q2

REPORT INFORMATION
  Report Type: Spontaneous
  Country: US (occurrence: US)
  Receive Date: 20130408
  Receipt Date: 20130408
  Transmission Date: 20140414
  Serious: Yes (Hospitalization, Other)
  Sender: FDA-Public Use
  Company Number: US-PFIZER INC-2013105680

PATIENT
  Age: 7 Year
  Sex: Female

DRUGS (9)
  1. CEFTAZIDIME [Suspect]
     Indication: SCRUB TYPHUS
     Dosage: UNK
  2. CEFTAZIDIME [Suspect]
     Indication: LEPTOSPIROSIS
  3. DOXYCYCLINE HYCLATE [Suspect]
     Indication: SCRUB TYPHUS
     Dosage: UNK
  4. DOXYCYCLINE HYCLATE [Suspect]
     Indication: LEPTOSPIROSIS
  5. SULFAMETHOXAZOLE/TRIMETHOPRIM [Suspect]
     Indication: SCRUB TYPHUS
     Dosage: UNK
  6. SULFAMETHOXAZOLE/TRIMETHOPRIM [Suspect]
     Indication: LEPTOSPIROSIS
  7. PREDNISOLONE [Concomitant]
     Indication: CHOLESTASIS
     Dosage: 2 MG/KG/DAY
  8. URSODEOXYCHOLIC ACID [Concomitant]
     Indication: CHOLESTASIS
     Dosage: 20 MG/KG/DAY
  9. URSODEOXYCHOLIC ACID [Concomitant]
     Dosage: 30 MG/KG/DAY

REACTIONS (14)
  - Toxic epidermal necrolysis [Unknown]
  - Vanishing bile duct syndrome [Unknown]
  - Drug hypersensitivity [None]
  - Cholestasis [None]
  - Hepatomegaly [None]
  - Platelet count increased [None]
  - Haemoglobin decreased [None]
  - Haematocrit decreased [None]
  - White blood cell count decreased [None]
  - Mean cell volume decreased [None]
  - Mean cell haemoglobin decreased [None]
  - Blood albumin decreased [None]
  - Dyspnoea [None]
  - Liver disorder [None]
